FAERS Safety Report 5279292-5 (Version None)
Quarter: 2007Q1

REPORT INFORMATION
  Report Type: 
  Country: None (occurrence: None)
  Receive Date: 20061213
  Receipt Date: 20050411
  Transmission Date: 20070707
  Serious: No
  Sender: FDA-Public Use
  Company Number: 2005UW04544

PATIENT
  Age: 27 Year
  Sex: Female

DRUGS (8)
  1. SEROQUEL [Suspect]
     Indication: POST-TRAUMATIC STRESS DISORDER
     Dosage: 150 MG HS PO
     Route: 048
  2. WELLBUTRIN [Suspect]
     Indication: POST-TRAUMATIC STRESS DISORDER
     Dosage: 450 MG DAILY PO
     Route: 048
     Dates: end: 20050217
  3. ATIVAN [Suspect]
     Dosage: 1 MG BID PO
     Route: 048
  4. REMERON [Suspect]
     Dosage: 7.5 MG DAILY PO
     Route: 048
  5. ZOFRAN [Suspect]
     Dosage: 8 MG PRN PO
     Route: 048
  6. PROZAC [Suspect]
     Indication: POST-TRAUMATIC STRESS DISORDER
     Dosage: 100 MG DAILY
     Dates: end: 20050315
  7. FIORICET [Concomitant]
  8. EXCEDRIN (MIGRAINE) [Concomitant]

REACTIONS (1)
  - CONVULSION [None]
